FAERS Safety Report 8500062-6 (Version None)
Quarter: 2012Q3

REPORT INFORMATION
  Report Type: 
  Country: None (occurrence: None)
  Receive Date: 20120710
  Receipt Date: 20120629
  Transmission Date: 20120928
  Serious: No
  Sender: FDA-Public Use
  Company Number: JP-VERTEX PHARMACEUTICALS INC.-AE-2012-006230

PATIENT
  Age: 56 Year
  Sex: Male

DRUGS (25)
  1. GASMOTIN [Concomitant]
     Route: 048
     Dates: start: 20120406, end: 20120417
  2. ALLEGRA [Concomitant]
     Route: 048
     Dates: start: 20120413
  3. LENDORMIN [Concomitant]
     Route: 048
  4. NEXIUM [Concomitant]
     Route: 048
     Dates: start: 20120320, end: 20120329
  5. TELAVIC (TELAPREVIR) [Suspect]
     Route: 048
     Dates: start: 20120511, end: 20120606
  6. PEGINTERFERON ALFA-2B [Concomitant]
     Route: 058
     Dates: start: 20120315
  7. SELBEX [Concomitant]
     Route: 048
     Dates: start: 20120412
  8. RIBAVIRIN [Concomitant]
     Route: 048
     Dates: start: 20120315, end: 20120405
  9. RIBAVIRIN [Concomitant]
     Route: 048
     Dates: start: 20120406
  10. OLOPATADINE HCL [Concomitant]
     Route: 048
     Dates: start: 20120330, end: 20120411
  11. HIRUDOID [Concomitant]
     Route: 051
     Dates: start: 20120413, end: 20120419
  12. YOMOGI LOTION [Concomitant]
     Route: 051
     Dates: start: 20120406, end: 20120412
  13. MOTILIUM [Concomitant]
     Route: 048
     Dates: start: 20120321, end: 20120329
  14. SELBEX [Concomitant]
     Route: 048
     Dates: start: 20120330, end: 20120405
  15. FAMOTIDINE [Concomitant]
     Route: 048
     Dates: start: 20120406, end: 20120412
  16. BETAMETHASONE SODIUM PHOSPHATE [Concomitant]
     Route: 051
     Dates: start: 20120420
  17. OLOPATADINE HCL [Concomitant]
     Route: 048
     Dates: start: 20120330, end: 20120411
  18. FEBURIC [Concomitant]
     Route: 048
     Dates: start: 20120330
  19. MARZULENE [Concomitant]
     Route: 048
     Dates: start: 20120321, end: 20120329
  20. NEO-MEDROL [Concomitant]
     Route: 051
     Dates: start: 20120330
  21. LANSOPRAZOLE [Concomitant]
     Route: 048
     Dates: start: 20120413
  22. TELAVIC (TELAPREVIR) [Suspect]
     Indication: HEPATITIS C
     Route: 048
     Dates: start: 20120315, end: 20120510
  23. RABEPRAZOLE SODIUM [Concomitant]
     Route: 048
     Dates: start: 20120330, end: 20120405
  24. PAXIL [Concomitant]
     Route: 048
     Dates: start: 20120407
  25. PRIMPERAN TAB [Concomitant]
     Route: 048
     Dates: start: 20120330, end: 20120405

REACTIONS (1)
  - RENAL IMPAIRMENT [None]
